FAERS Safety Report 4917893-1 (Version None)
Quarter: 2006Q1

REPORT INFORMATION
  Report Type: 
  Country: None (occurrence: None)
  Receive Date: 20060215
  Receipt Date: 20060202
  Transmission Date: 20060701
  Serious: Yes (Hospitalization)
  Sender: FDA-Public Use
  Company Number: 2006013405

PATIENT
  Age: 72 Year
  Sex: Male

DRUGS (9)
  1. PANTOPRAZOLE SODIUM [Suspect]
     Indication: ILL-DEFINED DISORDER
     Dosage: 40 MG (40 MG, 1 IN 1 D), ORAL
     Route: 048
     Dates: start: 20051011
  2. ASPIRIN [Suspect]
     Indication: MYOCARDIAL ISCHAEMIA
     Dosage: 100 MG (1 D), ORAL
     Route: 048
     Dates: start: 20050601, end: 20051010
  3. PREDNISONE TAB [Suspect]
     Indication: FACIAL PALSY
     Dosage: 100 MG (1 D), ORAL
     Route: 048
     Dates: start: 20051001, end: 20051016
  4. MARCUMAR [Suspect]
     Indication: ATRIAL FIBRILLATION
     Dosage: DF  ORAL
     Route: 048
     Dates: start: 20050601, end: 20051015
  5. CORDARONE [Suspect]
     Indication: ATRIAL FIBRILLATION
     Dosage: 200 MG (1 D), ORAL
     Route: 048
     Dates: start: 20050601, end: 20051005
  6. VALTREX [Concomitant]
  7. METOPROLOL TARTRATE [Concomitant]
  8. LESCOL [Concomitant]
  9. TOREM (TORASEMIDE) [Concomitant]

REACTIONS (2)
  - ARTHRALGIA [None]
  - MUSCLE HAEMORRHAGE [None]
